FAERS Safety Report 9243121 (Version 2)
Quarter: 2013Q2

REPORT INFORMATION
  Report Type: Report from Study
  Country: CA (occurrence: CA)
  Receive Date: 20130419
  Receipt Date: 20130626
  Transmission Date: 20140414
  Serious: No
  Sender: FDA-Public Use
  Company Number: CA-ABBOTT-13P-028-1077116-00

PATIENT
  Sex: Female
  Weight: 78.09 kg

DRUGS (11)
  1. HUMIRA [Suspect]
     Indication: RHEUMATOID ARTHRITIS
     Route: 058
     Dates: start: 20121213
  2. TYLENOL EXTRA STRENGTH [Concomitant]
     Indication: ARTHRITIS
     Dosage: DAILY
     Route: 048
  3. K-LYTE [Concomitant]
     Indication: PRODUCT USED FOR UNKNOWN INDICATION
     Route: 048
  4. TRAVATAN [Concomitant]
     Indication: GLAUCOMA
     Route: 061
  5. MULTIVITAMINS [Concomitant]
     Indication: PRODUCT USED FOR UNKNOWN INDICATION
  6. DILANTIN [Concomitant]
     Indication: PRODUCT USED FOR UNKNOWN INDICATION
     Route: 048
  7. TYLENOL ARTHRITIS EXTRA STRENGTH [Concomitant]
     Indication: ARTHRITIS
     Route: 048
  8. BRIMONIDINE [Concomitant]
     Indication: GLAUCOMA
     Route: 061
  9. PREVACID [Concomitant]
     Indication: ABDOMINAL DISCOMFORT
     Route: 048
  10. PROLIA [Concomitant]
     Indication: BONE DENSITY ABNORMAL
     Route: 058
     Dates: start: 201201
  11. METHOTREXATE [Concomitant]
     Indication: ARTHRITIS
     Route: 048
     Dates: end: 2012

REACTIONS (2)
  - Lipoma [Unknown]
  - Muscular weakness [Unknown]
